FAERS Safety Report 13540428 (Version 1)
Quarter: 2017Q2

REPORT INFORMATION
  Report Type: Spontaneous
  Country: US (occurrence: US)
  Receive Date: 20170512
  Receipt Date: 20170512
  Transmission Date: 20170830
  Serious: Yes (Life-Threatening, Hospitalization)
  Sender: FDA-Public Use
  Company Number: US-FRESENIUS KABI-FK201703734

PATIENT
  Age: 48 Year
  Sex: Male

DRUGS (5)
  1. NOREPINEPHRINE. [Concomitant]
     Active Substance: NOREPINEPHRINE
     Indication: VASOSPASM
     Route: 065
  2. VASOPRESSIN INJECTION (MANUFACTURER UNKNOWN) [Suspect]
     Active Substance: VASOPRESSIN
     Indication: VASOSPASM
     Route: 041
  3. PHENYLEPHRINE [Concomitant]
     Active Substance: PHENYLEPHRINE\PHENYLEPHRINE HYDROCHLORIDE
     Indication: VASOSPASM
     Route: 065
  4. HYPERTONIC SALINE [Concomitant]
     Active Substance: SODIUM CHLORIDE
     Indication: INAPPROPRIATE ANTIDIURETIC HORMONE SECRETION
     Route: 065
  5. DEMECLOCYCLINE [Concomitant]
     Active Substance: DEMECLOCYCLINE
     Indication: INAPPROPRIATE ANTIDIURETIC HORMONE SECRETION
     Route: 065

REACTIONS (4)
  - Mental status changes [Unknown]
  - Cardiac failure [Unknown]
  - Atrial fibrillation [Unknown]
  - Diabetes insipidus [Recovered/Resolved]
